FAERS Safety Report 10206118 (Version 1)
Quarter: 2014Q2

REPORT INFORMATION
  Report Type: Spontaneous
  Country: US (occurrence: None)
  Receive Date: 20140528
  Receipt Date: 20140528
  Transmission Date: 20141212
  Serious: No
  Sender: FDA-Public Use
  Company Number: None

PATIENT
  Age: 62 Year
  Sex: Female

DRUGS (1)
  1. LAMISIL [Suspect]
     Dates: start: 20120621, end: 20120803

REACTIONS (7)
  - Jaundice [None]
  - Decreased appetite [None]
  - Pruritus [None]
  - Faeces discoloured [None]
  - Fatigue [None]
  - Aspartate aminotransferase increased [None]
  - Alanine aminotransferase increased [None]
